FAERS Safety Report 10956341 (Version 2)
Quarter: 2015Q2

REPORT INFORMATION
  Report Type: Spontaneous
  Country: GR (occurrence: None)
  Receive Date: 20150324
  Receipt Date: 20150415
  Transmission Date: 20150821
  Serious: Yes (Other)
  Sender: FDA-Public Use
  Company Number: NL01PV15_38672

PATIENT
  Age: 85 Year
  Sex: Male

DRUGS (1)
  1. ZIDROLIN (TAMSULOSIN) CAPSULE [Suspect]
     Active Substance: TAMSULOSIN
     Indication: BENIGN PROSTATIC HYPERPLASIA
     Route: 048
     Dates: start: 201502, end: 20150226

REACTIONS (5)
  - Dysuria [None]
  - Product substitution issue [None]
  - Drug ineffective [None]
  - Product formulation issue [None]
  - Anuria [None]

NARRATIVE: CASE EVENT DATE: 201502
